FAERS Safety Report 8170739-3 (Version None)
Quarter: 2012Q1

REPORT INFORMATION
  Report Type: 
  Country: None (occurrence: None)
  Receive Date: 20120105
  Receipt Date: 20110321
  Transmission Date: 20120608
  Serious: Yes (Other)
  Sender: FDA-Public Use
  Company Number: 2011P1009134

PATIENT
  Sex: Female

DRUGS (1)
  1. PREDNISONE [Suspect]
     Dates: start: 20101221, end: 20110119

REACTIONS (1)
  - CONVULSION [None]
